FAERS Safety Report 24864619 (Version 1)
Quarter: 2025Q1

REPORT INFORMATION
  Report Type: Spontaneous
  Country: FR (occurrence: FR)
  Receive Date: 20250120
  Receipt Date: 20250120
  Transmission Date: 20250409
  Serious: Yes (Hospitalization)
  Sender: ACCORD
  Company Number: None

PATIENT
  Age: 74 Year
  Sex: Male
  Weight: 107 kg

DRUGS (12)
  1. EPLERENONE [Suspect]
     Active Substance: EPLERENONE
     Indication: Cardiomyopathy
  2. FUROSEMIDE [Suspect]
     Active Substance: FUROSEMIDE
     Indication: Cardiomyopathy
     Dates: end: 20240223
  3. IRBESARTAN [Suspect]
     Active Substance: IRBESARTAN
     Indication: Cardiomyopathy
     Dates: start: 202401, end: 20240223
  4. INDAPAMIDE [Suspect]
     Active Substance: INDAPAMIDE
     Indication: Cardiomyopathy
     Dates: start: 202401, end: 20240223
  5. PREGABALIN [Concomitant]
     Active Substance: PREGABALIN
  6. AMIODARONE [Concomitant]
     Active Substance: AMIODARONE
  7. SEVELAMER [Concomitant]
     Active Substance: SEVELAMER
  8. LANSOPRAZOLE [Concomitant]
     Active Substance: LANSOPRAZOLE
  9. ALFUZOSIN [Concomitant]
     Active Substance: ALFUZOSIN
  10. ATORVASTATIN [Concomitant]
     Active Substance: ATORVASTATIN
  11. EZETIMIBE [Concomitant]
     Active Substance: EZETIMIBE
  12. BISOPROLOL [Concomitant]
     Active Substance: BISOPROLOL

REACTIONS (1)
  - Acute kidney injury [Recovered/Resolved]

NARRATIVE: CASE EVENT DATE: 20240223
